FAERS Safety Report 9365309 (Version 2)
Quarter: 2013Q3

REPORT INFORMATION
  Report Type: Spontaneous
  Country: US (occurrence: US)
  Receive Date: 20130625
  Receipt Date: 20130808
  Transmission Date: 20140515
  Serious: Yes (Other)
  Sender: FDA-Public Use
  Company Number: US-ROCHE-1239846

PATIENT
  Sex: Female

DRUGS (2)
  1. RANIBIZUMAB [Suspect]
     Indication: AGE-RELATED MACULAR DEGENERATION
     Dosage: EIGHT INTRAVITREAL RANIBIZUMAB AND 10 INTRAVITREAL DOUBLE-DOSE RANIBIZUMAB INJECTIONS
     Route: 050
  2. BEVACIZUMAB [Concomitant]
     Route: 065

REACTIONS (4)
  - Retinal detachment [Recovered/Resolved]
  - Metamorphopsia [Unknown]
  - Detachment of retinal pigment epithelium [Recovered/Resolved]
  - Visual acuity reduced [Unknown]
